FAERS Safety Report 13261229 (Version 1)
Quarter: 2017Q1

REPORT INFORMATION
  Report Type: Spontaneous
  Country: FR (occurrence: FR)
  Receive Date: 20170222
  Receipt Date: 20170222
  Transmission Date: 20170428
  Serious: Yes (Death)
  Sender: FDA-Public Use
  Company Number: FR-009507513-1702FRA008018

PATIENT
  Age: 79 Year
  Sex: Female

DRUGS (6)
  1. FORTZAAR 100 MG/12.5 MG COMPRIME PELLICULE [Concomitant]
     Active Substance: HYDROCHLOROTHIAZIDE\LOSARTAN POTASSIUM
     Route: 048
  2. LEVOTHYROX [Concomitant]
     Active Substance: LEVOTHYROXINE
  3. KEYTRUDA [Suspect]
     Active Substance: PEMBROLIZUMAB
     Indication: METASTATIC MALIGNANT MELANOMA
     Dosage: 0.0952 MG/KG (2 MG/KG, ONCE EVERY 3 WEEKS)
     Route: 042
     Dates: start: 20161227
  4. CORDARONE [Concomitant]
     Active Substance: AMIODARONE HYDROCHLORIDE
  5. CELIPROLOL HYDROCHLORIDE [Concomitant]
     Active Substance: CELIPROLOL HYDROCHLORIDE
  6. ACETAMINOPHEN. [Concomitant]
     Active Substance: ACETAMINOPHEN

REACTIONS (3)
  - Pericardial effusion [Fatal]
  - Cardiogenic shock [Fatal]
  - Multiple organ dysfunction syndrome [Fatal]

NARRATIVE: CASE EVENT DATE: 20161231
